FAERS Safety Report 9506168 (Version 1)
Quarter: 2013Q1

REPORT INFORMATION
  Report Type: Spontaneous
  Country: US (occurrence: None)
  Receive Date: 20130301
  Receipt Date: 20130301
  Transmission Date: 20140127
  Serious: Yes (Other)
  Sender: FDA-Public Use
  Company Number: 363300

PATIENT
  Age: 48 Year
  Sex: Female
  Weight: 62.6 kg

DRUGS (2)
  1. NOVOLIN N RELI-ON [Suspect]
     Indication: TYPE 2 DIABETES MELLITUS
     Route: 058
     Dates: start: 20121019, end: 20121022
  2. NOVOLIN N RELI-ON [Suspect]
     Indication: TYPE 2 DIABETES MELLITUS
     Route: 058
     Dates: start: 20121019, end: 20121022

REACTIONS (3)
  - Drug hypersensitivity [None]
  - Rash generalised [None]
  - Pruritus [None]
